FAERS Safety Report 22766088 (Version 3)
Quarter: 2023Q4

REPORT INFORMATION
  Report Type: Spontaneous
  Country: ES (occurrence: None)
  Receive Date: 20230731
  Receipt Date: 20231205
  Transmission Date: 20240109
  Serious: Yes (Other)
  Sender: FDA-Public Use
  Company Number: ES-ROCHE-3392647

PATIENT
  Age: 39 Year
  Sex: Female
  Weight: 45 kg

DRUGS (10)
  1. OCREVUS [Suspect]
     Active Substance: OCRELIZUMAB
     Indication: Relapsing-remitting multiple sclerosis
     Dosage: INFUSION DATE: 7/APR/2021 (FIRST DOSE)
     Route: 065
     Dates: start: 20210323
  2. OCREVUS [Suspect]
     Active Substance: OCRELIZUMAB
     Dosage: (SECOND DOSE)
     Route: 065
     Dates: start: 20210908
  3. OCREVUS [Suspect]
     Active Substance: OCRELIZUMAB
     Dosage: (THIRD DOSE)
     Route: 065
     Dates: start: 20220328
  4. OCREVUS [Suspect]
     Active Substance: OCRELIZUMAB
     Dosage: (FOURTH DOSE)
     Route: 065
     Dates: start: 20220920
  5. OCREVUS [Suspect]
     Active Substance: OCRELIZUMAB
     Dosage: (FIFTH DOSE)
     Route: 065
     Dates: start: 20230322
  6. OCREVUS [Suspect]
     Active Substance: OCRELIZUMAB
     Route: 065
     Dates: start: 20230329
  7. VITAMIN D [Concomitant]
     Active Substance: VITAMIN D NOS
     Dosage: 2000 UI PER DAY
  8. TRAZODONE [Concomitant]
     Active Substance: TRAZODONE HYDROCHLORIDE
     Dosage: 100 MG/NIGHT
  9. ALMOTRIPTAN MALATE [Concomitant]
     Active Substance: ALMOTRIPTAN MALATE
     Dosage: 12.5 MG IF MIGRAINES (HIGHLY EPISODIC)
  10. PREDNISONE [Concomitant]
     Active Substance: PREDNISONE

REACTIONS (4)
  - Vulvovaginitis [Unknown]
  - Multiple sclerosis [Unknown]
  - Dysaesthesia [Unknown]
  - Vulvovaginal injury [Unknown]

NARRATIVE: CASE EVENT DATE: 20230301
